FAERS Safety Report 10674310 (Version 4)
Quarter: 2016Q1

REPORT INFORMATION
  Report Type: Spontaneous
  Country: US (occurrence: US)
  Receive Date: 20141222
  Receipt Date: 20160318
  Transmission Date: 20160525
  Serious: No
  Sender: FDA-Public Use
  Company Number: US-PFIZER INC-2014349026

PATIENT
  Age: 73 Year
  Sex: Female

DRUGS (1)
  1. XELJANZ [Suspect]
     Active Substance: TOFACITINIB CITRATE
     Indication: RHEUMATOID ARTHRITIS
     Dosage: 5 MG, UNK
     Dates: start: 2013

REACTIONS (5)
  - Condition aggravated [Unknown]
  - Hot flush [Recovering/Resolving]
  - Herpes zoster [Unknown]
  - Blood cholesterol increased [Unknown]
  - Axillary pain [Unknown]
